FAERS Safety Report 9132288 (Version 1)
Quarter: 2013Q1

REPORT INFORMATION
  Report Type: Spontaneous
  Country: US (occurrence: US)
  Receive Date: 20130120
  Receipt Date: 20130120
  Transmission Date: 20140127
  Serious: No
  Sender: FDA-Public Use
  Company Number: US-ALLERGAN-1213627US

PATIENT
  Age: 70 Year
  Sex: Female

DRUGS (2)
  1. BOTOX? [Suspect]
     Indication: BLEPHAROSPASM
     Dosage: 48 UNITS, SINGLE
     Route: 030
     Dates: start: 20111117, end: 20111117
  2. BOTOX? [Suspect]
     Dosage: 60 UNITS, SINGLE
     Route: 030
     Dates: start: 20120607, end: 20120607

REACTIONS (1)
  - Therapeutic response decreased [Unknown]
